FAERS Safety Report 14618807 (Version 1)
Quarter: 2018Q1

REPORT INFORMATION
  Report Type: Spontaneous
  Country: US (occurrence: US)
  Receive Date: 20180309
  Receipt Date: 20180309
  Transmission Date: 20180509
  Serious: No
  Sender: FDA-Public Use
  Company Number: US-LPDUSPRD-20170341

PATIENT
  Age: 28 Year
  Sex: Female
  Weight: 88 kg

DRUGS (2)
  1. ESTRADIOL VALERATE INJECTION, USP (0870-05) [Suspect]
     Active Substance: ESTRADIOL VALERATE
     Dosage: 50MG
     Route: 058
     Dates: start: 201702
  2. SPIRONOLACTONE. [Concomitant]
     Active Substance: SPIRONOLACTONE
     Dosage: DOSE UNKNOWN
     Route: 065
     Dates: start: 2015

REACTIONS (7)
  - Injection site pain [Not Recovered/Not Resolved]
  - Injection site discharge [None]
  - Pruritus [Not Recovered/Not Resolved]
  - Incorrect route of drug administration [Unknown]
  - Feeling abnormal [Not Recovered/Not Resolved]
  - Injection site mass [Not Recovered/Not Resolved]
  - Off label use [Unknown]

NARRATIVE: CASE EVENT DATE: 201703
